FAERS Safety Report 20784115 (Version 1)
Quarter: 2022Q2

REPORT INFORMATION
  Report Type: Spontaneous
  Country: FI (occurrence: FI)
  Receive Date: 20220504
  Receipt Date: 20220504
  Transmission Date: 20220721
  Serious: Yes (Hospitalization)
  Sender: FDA-Public Use
  Company Number: None

PATIENT
  Age: 74 Year
  Sex: Male

DRUGS (6)
  1. OLANZAPINE [Suspect]
     Active Substance: OLANZAPINE
     Dosage: 10 MILLIGRAM DAILY;
     Route: 048
     Dates: start: 20220125
  2. CINACALCET STADA [Concomitant]
     Dosage: 60 MILLIGRAM DAILY;
     Route: 048
     Dates: start: 20220310
  3. CETIRIZINE HYDROCHLORIDE [Concomitant]
     Active Substance: CETIRIZINE HYDROCHLORIDE
     Dosage: 10 MILLIGRAM DAILY;
     Route: 048
     Dates: start: 20220309
  4. FLUVASTATIN SODIUM [Concomitant]
     Active Substance: FLUVASTATIN SODIUM
     Dosage: 80 MILLIGRAM DAILY;
     Route: 048
     Dates: start: 20200304
  5. DUTASTERIDE KRKA [Concomitant]
     Dosage: .5 MILLIGRAM DAILY;
     Route: 048
     Dates: start: 20200304
  6. ESCITALOPRAM OXALATE [Concomitant]
     Active Substance: ESCITALOPRAM OXALATE
     Dosage: 10 MILLIGRAM DAILY;
     Route: 048
     Dates: start: 20220322

REACTIONS (13)
  - Aphasia [Recovering/Resolving]
  - Cogwheel rigidity [Recovering/Resolving]
  - Tremor [Recovering/Resolving]
  - C-reactive protein increased [Recovering/Resolving]
  - Catatonia [Recovering/Resolving]
  - Disorganised speech [Recovering/Resolving]
  - Tongue dry [Recovering/Resolving]
  - Disorientation [Recovering/Resolving]
  - Blood creatine phosphokinase increased [Recovering/Resolving]
  - Negativism [Recovering/Resolving]
  - Echolalia [Recovering/Resolving]
  - Pyrexia [Recovering/Resolving]
  - Hypokinesia [Recovering/Resolving]

NARRATIVE: CASE EVENT DATE: 20220321
